FAERS Safety Report 7121160-8 (Version None)
Quarter: 2010Q4

REPORT INFORMATION
  Report Type: 
  Country: None (occurrence: None)
  Receive Date: 20101122
  Receipt Date: 20101122
  Transmission Date: 20110411
  Serious: Yes (Death, Life-Threatening, Hospitalization, Disabling)
  Sender: FDA-Public Use
  Company Number: None

PATIENT
  Age: 46 Year
  Sex: Female
  Weight: 87 kg

DRUGS (9)
  1. PLAVIX [Suspect]
     Indication: ATRIAL THROMBOSIS
     Dosage: 75 MG DAILY PO
     Route: 048
     Dates: start: 20100701, end: 20100903
  2. VITAMIN D [Concomitant]
  3. METFORMIN HCL [Concomitant]
  4. DILTIAZEM [Concomitant]
  5. ZYRTEC [Concomitant]
  6. FLUCONAZOLE [Concomitant]
  7. NEXIUM [Concomitant]
  8. VIACTIN CHEW [Concomitant]
  9. NASONEX [Concomitant]

REACTIONS (4)
  - ANAEMIA [None]
  - DYSPNOEA [None]
  - NAUSEA [None]
  - THROMBOTIC THROMBOCYTOPENIC PURPURA [None]
